FAERS Safety Report 4693911-3 (Version None)
Quarter: 2005Q2

REPORT INFORMATION
  Report Type: 
  Country: None (occurrence: None)
  Receive Date: 20050616
  Receipt Date: 20050608
  Transmission Date: 20051028
  Serious: Yes (Death)
  Sender: FDA-Public Use
  Company Number: USA-2005-0020058

PATIENT
  Age: 29 Year
  Sex: Male
  Weight: 105.7 kg

DRUGS (6)
  1. OXYCONTIN [Suspect]
     Indication: PAIN
     Dosage: 80 MG, BID
     Dates: start: 20031217, end: 20050415
  2. VALIUM [Concomitant]
  3. ZANAFLEX [Concomitant]
  4. ALLEGRA-D [Concomitant]
  5. ALCOHOL [Concomitant]
  6. HEROIN (DIAMORPHINE) [Concomitant]

REACTIONS (4)
  - COMPLETED SUICIDE [None]
  - DEPRESSION [None]
  - GUN SHOT WOUND [None]
  - POLYSUBSTANCE ABUSE [None]
